FAERS Safety Report 14187796 (Version 2)
Quarter: 2017Q4

REPORT INFORMATION
  Report Type: Spontaneous
  Country: US (occurrence: US)
  Receive Date: 20171114
  Receipt Date: 20171222
  Transmission Date: 20180321
  Serious: No
  Sender: FDA-Public Use
  Company Number: US-PFIZER INC-2017486290

PATIENT
  Age: 51 Year
  Sex: Female
  Weight: 74 kg

DRUGS (3)
  1. ADVIL [Suspect]
     Active Substance: IBUPROFEN
     Indication: PAIN
     Dosage: 400 MG, AS NEEDED
  2. ADVIL [Suspect]
     Active Substance: IBUPROFEN
     Indication: HEADACHE
  3. ADVIL [Suspect]
     Active Substance: IBUPROFEN
     Indication: MUSCLE SPASMS

REACTIONS (2)
  - Intentional product misuse [Unknown]
  - Drug ineffective [Unknown]

NARRATIVE: CASE EVENT DATE: 201711
